FAERS Safety Report 19149376 (Version 1)
Quarter: 2021Q2

REPORT INFORMATION
  Report Type: Spontaneous
  Country: US (occurrence: US)
  Receive Date: 20210416
  Receipt Date: 20210416
  Transmission Date: 20210717
  Serious: No
  Sender: FDA-Public Use
  Company Number: US-FRESENIUS KABI-FK202103836

PATIENT
  Age: 5 Month
  Sex: Male

DRUGS (1)
  1. OMEGAVEN [Suspect]
     Active Substance: FISH OIL
     Indication: PARENTERAL NUTRITION
     Dosage: UNKNOWN
     Route: 065
     Dates: start: 202102, end: 20210408

REACTIONS (1)
  - Growth disorder [Unknown]
